FAERS Safety Report 15666184 (Version 1)
Quarter: 2018Q4

REPORT INFORMATION
  Report Type: Spontaneous
  Country: CA (occurrence: CA)
  Receive Date: 20181128
  Receipt Date: 20181128
  Transmission Date: 20190205
  Serious: Yes (Hospitalization, Other)
  Sender: FDA-Public Use
  Company Number: CA-MYLANLABS-2018M1087968

PATIENT
  Age: 8 Year
  Sex: Female
  Weight: 27.4 kg

DRUGS (4)
  1. GUANFACINE. [Suspect]
     Active Substance: GUANFACINE
     Dosage: FURTHER TAPERED TO 2MG DAILY
     Route: 065
  2. NALOXONE [Concomitant]
     Active Substance: NALOXONE
     Indication: ATTENTION DEFICIT/HYPERACTIVITY DISORDER
     Route: 065
  3. GUANFACINE. [Suspect]
     Active Substance: GUANFACINE
     Indication: ATTENTION DEFICIT/HYPERACTIVITY DISORDER
     Dosage: INITIAL DOSE NOT STATED; LATER INCREASED TO 3MG DAILY
     Route: 065
  4. GUANFACINE. [Suspect]
     Active Substance: GUANFACINE
     Dosage: TWO WEEKS LATER, THE DOSE WAS RAISED TO 3MG FOR 3 WEEKS
     Route: 065

REACTIONS (12)
  - Somnolence [Recovered/Resolved]
  - Oedema peripheral [Recovered/Resolved]
  - Atrioventricular dissociation [Recovered/Resolved]
  - Electrocardiogram QT shortened [Recovered/Resolved]
  - Respiratory acidosis [Recovered/Resolved]
  - Bradycardia [Recovering/Resolving]
  - Bradypnoea [Recovered/Resolved]
  - Cardiac murmur functional [Recovered/Resolved]
  - Hypotension [Recovered/Resolved]
  - Cardiac disorder [Recovered/Resolved]
  - Dizziness [Recovered/Resolved]
  - Supraventricular extrasystoles [Recovered/Resolved]
